FAERS Safety Report 24457195 (Version 1)
Quarter: 2024Q4

REPORT INFORMATION
  Report Type: Spontaneous
  Country: US (occurrence: US)
  Receive Date: 20241018
  Receipt Date: 20241018
  Transmission Date: 20250114
  Serious: Yes (Other)
  Sender: ABBVIE
  Company Number: US-ABBVIE-5964650

PATIENT
  Age: 80 Year
  Sex: Female

DRUGS (1)
  1. REFRESH P.M. [Suspect]
     Active Substance: MINERAL OIL\PETROLATUM
     Indication: Dry eye
     Route: 047

REACTIONS (4)
  - Cataract [Unknown]
  - Exfoliation syndrome [Unknown]
  - Eye discharge [Unknown]
  - Eye complication associated with device [Unknown]
